FAERS Safety Report 7817180 (Version 4)
Quarter: 2013Q2

REPORT INFORMATION
  Report Type: Report from Study
  Country: US (occurrence: US)
  Receive Date: 20110217
  Receipt Date: 20130404
  Transmission Date: 20140414
  Serious: Yes (Hospitalization)
  Sender: FDA-Public Use
  Company Number: US-ABBOTT-11P-163-0705425-00

PATIENT
  Age: 46 Year
  Sex: Female
  Weight: 54.48 kg

DRUGS (7)
  1. HUMIRA 40 MG/0.8 ML PEN [Suspect]
     Indication: COLITIS ULCERATIVE
     Dates: start: 200807, end: 200911
  2. HUMIRA 40 MG/0.8 ML PEN [Suspect]
     Dates: start: 20100620
  3. RITALIN [Concomitant]
     Indication: ATTENTION DEFICIT/HYPERACTIVITY DISORDER
  4. VITAMIN B12 [Concomitant]
     Indication: PRODUCT USED FOR UNKNOWN INDICATION
  5. VITAMIN B6 [Concomitant]
     Indication: PRODUCT USED FOR UNKNOWN INDICATION
  6. MULTIVITAMIN [Concomitant]
     Indication: PRODUCT USED FOR UNKNOWN INDICATION
  7. HEMP SEED [Concomitant]
     Indication: SUPPLEMENTATION THERAPY

REACTIONS (11)
  - Female genital tract fistula [Recovered/Resolved]
  - Colitis ulcerative [Recovered/Resolved]
  - Inguinal hernia strangulated [Recovered/Resolved]
  - Colitis [Recovered/Resolved]
  - Pyrexia [Recovered/Resolved]
  - Pelvic fracture [Recovered/Resolved]
  - Road traffic accident [Unknown]
  - Feeling hot [Recovered/Resolved]
  - Injection site rash [Recovered/Resolved]
  - Abdominal pain [Unknown]
  - Influenza [Not Recovered/Not Resolved]
